FAERS Safety Report 7766805-4 (Version None)
Quarter: 2011Q3

REPORT INFORMATION
  Report Type: 
  Country: None (occurrence: None)
  Receive Date: 20110922
  Receipt Date: 20110119
  Transmission Date: 20111222
  Serious: No
  Sender: FDA-Public Use
  Company Number: US-ASTRAZENECA-2011SE03539

PATIENT
  Age: 59 Year
  Sex: Female
  Weight: 56 kg

DRUGS (5)
  1. INDERAL [Concomitant]
  2. SEROQUEL [Suspect]
     Route: 048
  3. ZOLOFT [Concomitant]
  4. SEROQUEL [Suspect]
     Indication: AFFECTIVE DISORDER
     Route: 048
  5. TOPAMAX [Concomitant]

REACTIONS (2)
  - DRUG DOSE OMISSION [None]
  - PANIC ATTACK [None]
